FAERS Safety Report 9942289 (Version 2)
Quarter: 2014Q1

REPORT INFORMATION
  Report Type: Spontaneous
  Country: IT (occurrence: IT)
  Receive Date: 20140303
  Receipt Date: 20140303
  Transmission Date: 20141002
  Serious: Yes (Other)
  Sender: FDA-Public Use
  Company Number: IT-TEVA-434148ISR

PATIENT
  Age: 73 Year
  Sex: Female

DRUGS (2)
  1. LITIO CARBONATO [Suspect]
     Indication: BIPOLAR DISORDER
     Dosage: 300 MILLIGRAM DAILY;
     Route: 048
     Dates: start: 19810101, end: 20110414
  2. VALSARTAN ABC [Concomitant]

REACTIONS (3)
  - Toxicity to various agents [Recovering/Resolving]
  - Parkinsonism [Recovering/Resolving]
  - Hypothyroidism [Recovering/Resolving]
